FAERS Safety Report 11578908 (Version 1)
Quarter: 2015Q3

REPORT INFORMATION
  Report Type: Spontaneous
  Country: US (occurrence: US)
  Receive Date: 20150916
  Receipt Date: 20150916
  Transmission Date: 20151125
  Serious: No
  Sender: FDA-Public Use
  Company Number: US-ELI_LILLY_AND_COMPANY-US201307005925

PATIENT
  Sex: Male

DRUGS (10)
  1. LANTUS [Concomitant]
     Active Substance: INSULIN GLARGINE
     Dosage: 20 U, SINGLE
  2. NOVOLOG [Concomitant]
     Active Substance: INSULIN ASPART
  3. TICAGRELOR [Concomitant]
     Active Substance: TICAGRELOR
  4. BIDIL [Concomitant]
     Active Substance: HYDRALAZINE HYDROCHLORIDE\ISOSORBIDE DINITRATE
  5. HUMALOG [Suspect]
     Active Substance: INSULIN LISPRO
     Indication: TYPE 2 DIABETES MELLITUS
     Dosage: 2 U, SINGLE
  6. LASIX [Concomitant]
     Active Substance: FUROSEMIDE
  7. SYNTHROID [Concomitant]
     Active Substance: LEVOTHYROXINE SODIUM
  8. ASPIRIN. [Concomitant]
     Active Substance: ASPIRIN
  9. VYTORIN [Concomitant]
     Active Substance: EZETIMIBE\SIMVASTATIN
  10. COREG [Concomitant]
     Active Substance: CARVEDILOL

REACTIONS (2)
  - Tremor [Unknown]
  - Hyperhidrosis [Unknown]
